FAERS Safety Report 6620418 (Version 2)
Quarter: 2020Q3

REPORT INFORMATION
  Report Type: Report from Study
  Country: US (occurrence: US)
  Receive Date: 20080422
  Receipt Date: 20080509
  Transmission Date: 20201104
  Serious: Yes (Other)
  Sender: FDA-Public Use
  Company Number: US-JNJFOC-20080404147

PATIENT
  Age: 49 Year
  Sex: Female

DRUGS (6)
  1. CISAPRIDE [Suspect]
     Active Substance: CISAPRIDE
     Route: 065
  2. PROPO?N/APAP [Concomitant]
     Indication: ABDOMINAL PAIN
     Dosage: STARTED PRE TRIAL
     Route: 065
  3. ACETAMINOPHEN. [Concomitant]
     Active Substance: ACETAMINOPHEN
     Indication: ABDOMINAL PAIN
     Dosage: STARTED PRE?TRIAL
  4. CISAPRIDE [Suspect]
     Active Substance: CISAPRIDE
     Indication: IMPAIRED GASTRIC EMPTYING
     Dosage: 40 MG PER DAY, 1 BOTTLE
     Route: 065
  5. IBUPROFEN. [Concomitant]
     Active Substance: IBUPROFEN
     Indication: HEADACHE
     Dosage: STARTED PRE TRIAL
     Route: 065
  6. CISAPRIDE [Suspect]
     Active Substance: CISAPRIDE
     Dosage: 80 MG PER DAY
     Route: 065

REACTIONS (1)
  - Electrocardiogram QT prolonged [Recovered/Resolved]

NARRATIVE: CASE EVENT DATE: 20041112
